FAERS Safety Report 9533027 (Version 2)
Quarter: 2013Q4

REPORT INFORMATION
  Report Type: Spontaneous
  Country: DE (occurrence: DE)
  Receive Date: 20130918
  Receipt Date: 20131003
  Transmission Date: 20140711
  Serious: Yes (Other)
  Sender: FDA-Public Use
  Company Number: DE-GILEAD-2013-0083373

PATIENT
  Age: 34 Year
  Sex: Male

DRUGS (4)
  1. TRUVADA [Suspect]
     Indication: HIV INFECTION
     Dosage: 1 DF, QD
     Route: 048
     Dates: start: 201003, end: 201305
  2. ISENTRESS [Concomitant]
     Dosage: 2 DF, QD
     Route: 048
     Dates: start: 201003
  3. PREZISTA [Concomitant]
     Dosage: 2 DF, QD
     Route: 048
     Dates: start: 201305
  4. NORVIR [Concomitant]
     Dosage: 2 DF, QD
     Dates: start: 201305

REACTIONS (1)
  - Osteonecrosis [Not Recovered/Not Resolved]
